FAERS Safety Report 7470574-5 (Version None)
Quarter: 2011Q2

REPORT INFORMATION
  Report Type: 
  Country: None (occurrence: None)
  Receive Date: 20110429
  Receipt Date: 20110419
  Transmission Date: 20111010
  Serious: Yes (Disabling)
  Sender: FDA-Public Use
  Company Number: 898057

PATIENT
  Sex: Male
  Weight: 0.94 kg

DRUGS (2)
  1. VANCOMYCIN HYDROCHLORIDE [Suspect]
     Indication: SEPSIS
  2. FUROSEMIDE [Concomitant]

REACTIONS (1)
  - HEARING IMPAIRED [None]
